FAERS Safety Report 12241000 (Version 2)
Quarter: 2016Q2

REPORT INFORMATION
  Report Type: Report from Study
  Country: GB (occurrence: GB)
  Receive Date: 20160406
  Receipt Date: 20160407
  Transmission Date: 20160815
  Serious: Yes (Other)
  Sender: FDA-Public Use
  Company Number: GB-ROCHE-1737418

PATIENT
  Sex: Female

DRUGS (1)
  1. ROACTEMRA [Suspect]
     Active Substance: TOCILIZUMAB
     Indication: RHEUMATOID ARTHRITIS
     Route: 058
     Dates: start: 20151118

REACTIONS (5)
  - Haemoptysis [Unknown]
  - Peripheral swelling [Unknown]
  - Pain [Unknown]
  - Lower respiratory tract infection [Unknown]
  - Drug ineffective [Unknown]
